FAERS Safety Report 14012064 (Version 1)
Quarter: 2017Q3

REPORT INFORMATION
  Report Type: Spontaneous
  Country: US (occurrence: US)
  Receive Date: 20170926
  Receipt Date: 20170926
  Transmission Date: 20171128
  Serious: Yes (Life-Threatening, Hospitalization, Other)
  Sender: FDA-Public Use
  Company Number: None

PATIENT
  Age: 65 Year
  Sex: Male
  Weight: 59.42 kg

DRUGS (22)
  1. NORMAL SALINE [Concomitant]
     Active Substance: SODIUM CHLORIDE
  2. ENOXAPARIN [Concomitant]
     Active Substance: ENOXAPARIN
  3. METHYLPREDNISOLONE. [Concomitant]
     Active Substance: METHYLPREDNISOLONE
  4. METOPROLOL SUCCINEATE [Concomitant]
  5. DIPHENDRYAMINE [Concomitant]
  6. HYDRALAZINE [Concomitant]
     Active Substance: HYDRALAZINE HYDROCHLORIDE
  7. LISINOPRIL. [Concomitant]
     Active Substance: LISINOPRIL
  8. MAG SULFATE [Concomitant]
  9. MAGOX [Concomitant]
  10. MEGESTROL [Concomitant]
     Active Substance: MEGESTROL
  11. TYLENOL [Concomitant]
     Active Substance: ACETAMINOPHEN
  12. IPRATROPIUM/ALBUTEROL [Concomitant]
     Active Substance: ALBUTEROL\IPRATROPIUM
  13. PREDNISONE. [Concomitant]
     Active Substance: PREDNISONE
  14. ENTRESTO [Suspect]
     Active Substance: SACUBITRIL\VALSARTAN
     Indication: CARDIOMYOPATHY
     Route: 048
     Dates: start: 20170922, end: 20170923
  15. AZITHROMYCIN ANHYDROUS. [Concomitant]
     Active Substance: AZITHROMYCIN ANHYDROUS
  16. FAMOTIDINE. [Concomitant]
     Active Substance: FAMOTIDINE
  17. PANTOPRAZOLE [Concomitant]
     Active Substance: PANTOPRAZOLE
  18. RANITIDINE. [Concomitant]
     Active Substance: RANITIDINE
  19. ASPIRIN. [Concomitant]
     Active Substance: ASPIRIN
  20. AMLODIPINE [Concomitant]
     Active Substance: AMLODIPINE BESYLATE
  21. PROVENTIL [Concomitant]
     Active Substance: ALBUTEROL
  22. ABETALOL [Concomitant]

REACTIONS (2)
  - Angioedema [None]
  - Therapy cessation [None]

NARRATIVE: CASE EVENT DATE: 20170923
